FAERS Safety Report 19296283 (Version 1)
Quarter: 2021Q2

REPORT INFORMATION
  Report Type: Spontaneous
  Country: GR (occurrence: GR)
  Receive Date: 20210524
  Receipt Date: 20210524
  Transmission Date: 20210717
  Serious: Yes (Other)
  Sender: FDA-Public Use
  Company Number: NVSC2021GR108156

PATIENT
  Age: 73 Year
  Sex: Male
  Weight: 99 kg

DRUGS (1)
  1. LOPRESOR [Suspect]
     Active Substance: METOPROLOL
     Indication: ACUTE MYOCARDIAL INFARCTION
     Dosage: 1 DF (1/2 TAB TWICE PER DAY)
     Route: 048
     Dates: start: 20000101

REACTIONS (2)
  - Pain in extremity [Not Recovered/Not Resolved]
  - Burning sensation [Not Recovered/Not Resolved]

NARRATIVE: CASE EVENT DATE: 20210415
